FAERS Safety Report 13980909 (Version 1)
Quarter: 2017Q3

REPORT INFORMATION
  Report Type: Spontaneous
  Country: US (occurrence: US)
  Receive Date: 20170918
  Receipt Date: 20170918
  Transmission Date: 20171128
  Serious: No
  Sender: FDA-Public Use
  Company Number: US-TEVA-693525USA

PATIENT
  Age: 86 Year
  Sex: Female
  Weight: 74.83 kg

DRUGS (5)
  1. FEXOFENADINE [Suspect]
     Active Substance: FEXOFENADINE\FEXOFENADINE HYDROCHLORIDE
     Indication: RASH
     Dosage: 180 MILLIGRAM DAILY;
     Route: 048
     Dates: start: 20160805, end: 20160808
  2. BABY ASPIRIN [Concomitant]
     Active Substance: ASPIRIN
  3. SYNTHROID [Concomitant]
     Active Substance: LEVOTHYROXINE SODIUM
  4. FEXOFENADINE [Suspect]
     Active Substance: FEXOFENADINE\FEXOFENADINE HYDROCHLORIDE
     Dosage: 1/2 TABLET
     Route: 048
     Dates: start: 20160809
  5. SIMVASTATIN. [Concomitant]
     Active Substance: SIMVASTATIN

REACTIONS (6)
  - Drug administration error [Unknown]
  - Pollakiuria [Not Recovered/Not Resolved]
  - Drug administered to patient of inappropriate age [Unknown]
  - Tremor [Not Recovered/Not Resolved]
  - Wrong technique in product usage process [Unknown]
  - Product use in unapproved indication [Unknown]

NARRATIVE: CASE EVENT DATE: 20160805
